FAERS Safety Report 5181790-X (Version None)
Quarter: 2006Q4

REPORT INFORMATION
  Report Type: 
  Country: None (occurrence: None)
  Receive Date: 20061220
  Receipt Date: 20061206
  Transmission Date: 20070319
  Serious: Yes (Hospitalization)
  Sender: FDA-Public Use
  Company Number: US-AMGEN-US202542

PATIENT
  Sex: Female

DRUGS (3)
  1. ENBREL [Suspect]
     Indication: RHEUMATOID ARTHRITIS
     Route: 058
     Dates: start: 20060808, end: 20061009
  2. LEFLUNOMIDE [Concomitant]
     Dates: start: 20060901, end: 20061013
  3. PREDNISOLONE [Concomitant]
     Dates: start: 20061017, end: 20061127

REACTIONS (4)
  - CELLULITIS [None]
  - FATIGUE [None]
  - HAEMATOCHEZIA [None]
  - PYREXIA [None]
